FAERS Safety Report 16943201 (Version 3)
Quarter: 2019Q4

REPORT INFORMATION
  Report Type: Spontaneous
  Country: US (occurrence: US)
  Receive Date: 20191021
  Receipt Date: 20191108
  Transmission Date: 20200122
  Serious: No
  Sender: FDA-Public Use
  Company Number: US-ELI_LILLY_AND_COMPANY-US201910005373

PATIENT
  Age: 15 Year
  Sex: Male

DRUGS (3)
  1. HUMATROPE [Suspect]
     Active Substance: SOMATROPIN
     Dosage: 5.2 MG, DAILY
     Route: 065
  2. HUMATROPE [Suspect]
     Active Substance: SOMATROPIN
     Dosage: 5.2 MG, DAILY
     Route: 065
  3. HUMATROPE [Suspect]
     Active Substance: SOMATROPIN
     Indication: HYPOPITUITARISM
     Dosage: 5.2 MG, DAILY
     Route: 065

REACTIONS (2)
  - Underdose [Recovered/Resolved]
  - Injection site mass [Unknown]
